FAERS Safety Report 6545156-X (Version None)
Quarter: 2010Q1

REPORT INFORMATION
  Report Type: 
  Country: None (occurrence: None)
  Receive Date: 20100121
  Receipt Date: 20100113
  Transmission Date: 20100710
  Serious: Yes (Hospitalization, Other)
  Sender: FDA-Public Use
  Company Number: JP-JNJFOC-20091205389

PATIENT
  Sex: Female
  Weight: 57 kg

DRUGS (8)
  1. REMICADE [Suspect]
     Indication: RHEUMATOID ARTHRITIS
     Dosage: TOTAL OF 2 INFUSIONS
     Route: 042
  2. REMICADE [Suspect]
     Dosage: 1ST INFUUSION
     Route: 042
  3. ACTEMRA [Suspect]
     Indication: RHEUMATOID ARTHRITIS
     Route: 042
  4. RHEUMATREX [Suspect]
     Indication: RHEUMATOID ARTHRITIS
     Route: 048
  5. PREDNISONE [Concomitant]
     Indication: RHEUMATOID ARTHRITIS
     Route: 048
  6. LOXONIN [Concomitant]
     Indication: RHEUMATOID ARTHRITIS
     Route: 048
  7. BONALON [Concomitant]
     Indication: OSTEOPOROSIS PROPHYLAXIS
     Route: 048
  8. CYTOTEC [Concomitant]
     Indication: PROPHYLAXIS AGAINST GASTROINTESTINAL ULCER
     Dosage: DOSE REPORTED AS 300RG
     Route: 048

REACTIONS (1)
  - GASTRIC CANCER [None]
